FAERS Safety Report 25957345 (Version 1)
Quarter: 2025Q4

REPORT INFORMATION
  Report Type: Spontaneous
  Country: US (occurrence: US)
  Receive Date: 20251024
  Receipt Date: 20251024
  Transmission Date: 20260118
  Serious: No
  Sender: SEPTODONT
  Company Number: US-SEPTODONT-2025019427

PATIENT
  Sex: Male

DRUGS (3)
  1. ARTICADENT [Suspect]
     Active Substance: ARTICAINE HYDROCHLORIDE\EPINEPHRINE BITARTRATE
     Indication: Dental local anaesthesia
     Dosage: 1 TO 2 CARTRIDGES
     Route: 065
     Dates: start: 202501
  2. Monoject 30G short needles [Concomitant]
     Dates: start: 202501
  3. Normal metal syringe [Concomitant]
     Dates: start: 202501

REACTIONS (1)
  - Drug ineffective [Unknown]

NARRATIVE: CASE EVENT DATE: 20250101
